FAERS Safety Report 19618389 (Version 1)
Quarter: 2021Q3

REPORT INFORMATION
  Report Type: Spontaneous
  Country: US (occurrence: US)
  Receive Date: 20210727
  Receipt Date: 20210727
  Transmission Date: 20211014
  Serious: No
  Sender: FDA-Public Use
  Company Number: US-ROCHE-2783797

PATIENT
  Sex: Male
  Weight: 118.04 kg

DRUGS (3)
  1. ELIQUIS [Concomitant]
     Active Substance: APIXABAN
     Route: 048
     Dates: start: 20201019
  2. XELODA [Suspect]
     Active Substance: CAPECITABINE
     Indication: RECTAL CANCER
     Dosage: TAKE 4 TABLET TWICE A DAY FOR 14 DAYS ON AND 7 DAYS OFF
     Route: 048
     Dates: start: 20201021
  3. INSULIN [Concomitant]
     Active Substance: INSULIN NOS

REACTIONS (2)
  - Rhinorrhoea [Unknown]
  - Diarrhoea [Unknown]
